FAERS Safety Report 13629334 (Version 2)
Quarter: 2017Q3

REPORT INFORMATION
  Report Type: Report from Study
  Country: ES (occurrence: ES)
  Receive Date: 20170608
  Receipt Date: 20170821
  Transmission Date: 20171127
  Serious: No
  Sender: FDA-Public Use
  Company Number: ES-ALEXION-A201705232

PATIENT
  Age: 3 Month
  Sex: Male

DRUGS (4)
  1. BICARBONATE [Concomitant]
     Active Substance: BICARBONATE ION
     Indication: PRODUCT USED FOR UNKNOWN INDICATION
     Dosage: UNK
     Route: 048
  2. SOLIRIS [Suspect]
     Active Substance: ECULIZUMAB
     Indication: HAEMOLYTIC URAEMIC SYNDROME
     Dosage: 300 MG, SINGLE
     Route: 042
     Dates: start: 20161224
  3. SOLIRIS [Suspect]
     Active Substance: ECULIZUMAB
     Dosage: 300 MG, Q3W
     Route: 042
     Dates: start: 20161229
  4. IRON [Concomitant]
     Active Substance: IRON
     Indication: PRODUCT USED FOR UNKNOWN INDICATION
     Dosage: UNK
     Route: 048

REACTIONS (4)
  - Infection [Unknown]
  - Metabolic disorder [Not Recovered/Not Resolved]
  - Hyperhomocysteinaemia [Recovered/Resolved]
  - Amino acid level increased [Recovered/Resolved]

NARRATIVE: CASE EVENT DATE: 20170118
